FAERS Safety Report 9796356 (Version 2)
Quarter: 2014Q1

REPORT INFORMATION
  Report Type: Spontaneous
  Country: US (occurrence: US)
  Receive Date: 20140103
  Receipt Date: 20140314
  Transmission Date: 20141002
  Serious: Yes (Other)
  Sender: FDA-Public Use
  Company Number: US-PFIZER INC-2014000727

PATIENT
  Age: 73 Year
  Sex: Male
  Weight: 70.3 kg

DRUGS (8)
  1. LIPITOR [Suspect]
     Indication: BLOOD CHOLESTEROL INCREASED
     Dosage: 40 MG, DAILY
     Route: 048
  2. COLESTIPOL [Concomitant]
     Dosage: 5 G, DAILY
  3. PROCARDIA XL [Concomitant]
     Dosage: 30 MG, DAILY
     Route: 048
  4. TAMSULOSIN HYDROCHLORIDE [Concomitant]
     Dosage: 0.4 MG, DAILY
     Route: 048
  5. MEDROL [Concomitant]
     Dosage: 4 MG, UNK
  6. NEXIUM [Concomitant]
     Dosage: 40 MG, DAILY
     Route: 048
  7. ASPIRIN [Concomitant]
     Dosage: 81 MG, UNK
  8. CALCIUM [Concomitant]
     Dosage: UNK

REACTIONS (1)
  - Jaw fracture [Not Recovered/Not Resolved]
